FAERS Safety Report 5853289-6 (Version None)
Quarter: 2008Q3

REPORT INFORMATION
  Report Type: 
  Country: None (occurrence: None)
  Receive Date: 20080821
  Receipt Date: 20080811
  Transmission Date: 20090109
  Serious: Yes (Hospitalization, Other)
  Sender: FDA-Public Use
  Company Number: DE-ABBOTT-08P-062-0464384-00

PATIENT
  Sex: Male
  Weight: 60 kg

DRUGS (4)
  1. KALETRA [Suspect]
     Indication: HIV INFECTION
     Route: 048
     Dates: start: 20080720, end: 20080720
  2. STAVUDINE [Suspect]
     Indication: SUICIDE ATTEMPT
     Route: 048
     Dates: start: 20080720, end: 20080720
  3. ABACAVIR [Suspect]
     Indication: SUICIDE ATTEMPT
     Route: 048
     Dates: start: 20080720, end: 20080720
  4. ETOH [Suspect]
     Indication: SUICIDE ATTEMPT
     Dates: start: 20080720, end: 20080720

REACTIONS (4)
  - BREATH ODOUR [None]
  - COMA [None]
  - MYDRIASIS [None]
  - SUICIDE ATTEMPT [None]
